FAERS Safety Report 10251521 (Version 1)
Quarter: 2014Q2

REPORT INFORMATION
  Report Type: Report from Study
  Country: US (occurrence: US)
  Receive Date: 20140623
  Receipt Date: 20140623
  Transmission Date: 20141212
  Serious: Yes (Death, Other)
  Sender: FDA-Public Use
  Company Number: US-ROCHE-1421760

PATIENT
  Sex: Male

DRUGS (1)
  1. ALTEPLASE [Suspect]
     Indication: THROMBOLYSIS
     Route: 042

REACTIONS (3)
  - Cardio-respiratory arrest [Fatal]
  - Brain oedema [Unknown]
  - Haemorrhage intracranial [Unknown]
